FAERS Safety Report 8861821 (Version 1)
Quarter: 2012Q4

REPORT INFORMATION
  Report Type: Spontaneous
  Country: GB (occurrence: None)
  Receive Date: 20121023
  Receipt Date: 20121023
  Transmission Date: 20130627
  Serious: Yes (Hospitalization)
  Sender: FDA-Public Use
  Company Number: DEP_00729_2012

PATIENT
  Age: 43 Year
  Sex: Female

DRUGS (5)
  1. GABAPENTIN [Suspect]
     Dosage: Not the prescribed dose
     Route: 048
  2. DILTIAZEM [Suspect]
     Dosage: Not the prescribed dose
     Route: 048
  3. CITALOPRAM (CITALOPRAM) [Suspect]
     Dosage: Not the prescribed dose
     Route: 048
  4. DIAZEPAM [Suspect]
     Dosage: Not the prescribed dose.
     Route: 048
  5. IRBESARTAN [Suspect]
     Dosage: Not the prescribed dose
     Route: 048

REACTIONS (12)
  - Hypotension [None]
  - Bradycardia [None]
  - Atrioventricular block complete [None]
  - Disease recurrence [None]
  - Pulmonary oedema [None]
  - Hypoxia [None]
  - Left ventricular dysfunction [None]
  - Renal impairment [None]
  - Depressed level of consciousness [None]
  - Prescribed overdose [None]
  - Anuria [None]
  - Haemodialysis [None]
